FAERS Safety Report 12946495 (Version 1)
Quarter: 2016Q4

REPORT INFORMATION
  Report Type: Spontaneous
  Country: US (occurrence: US)
  Receive Date: 20161116
  Receipt Date: 20161116
  Transmission Date: 20170207
  Serious: Yes (Other)
  Sender: FDA-Public Use
  Company Number: US-DRREDDYS-USA/USA/16/0084742

PATIENT
  Sex: Female

DRUGS (1)
  1. ZENATANE [Suspect]
     Active Substance: ISOTRETINOIN
     Indication: ACNE
     Route: 048
     Dates: start: 20161003, end: 20161030

REACTIONS (6)
  - Dry skin [Recovered/Resolved]
  - Lip dry [Recovered/Resolved]
  - Epistaxis [Recovered/Resolved]
  - Dry eye [Recovered/Resolved]
  - Myalgia [Recovered/Resolved]
  - Mood swings [Recovered/Resolved]
